FAERS Safety Report 8865772 (Version 1)
Quarter: 2012Q4

REPORT INFORMATION
  Report Type: 
  Country: US (occurrence: US)
  Receive Date: 20121024
  Receipt Date: 20121024
  Transmission Date: 20130627
  Serious: Yes (Other)
  Sender: FDA-Public Use
  Company Number: US-AMGEN-USASP2012001701

PATIENT
  Age: 69 Year
  Sex: Female
  Weight: 86.17 kg

DRUGS (10)
  1. ENBREL [Suspect]
     Indication: RHEUMATOID ARTHRITIS
     Dosage: 50 mg, qwk
     Dates: start: 20041203
  2. METHOTREXATE [Concomitant]
     Dosage: UNK
  3. LEVOXYL [Concomitant]
     Dosage: UNK
  4. ACTONEL [Concomitant]
     Dosage: UNK
  5. NEXIUM                             /01479302/ [Concomitant]
     Dosage: UNK
  6. LIPITOR [Concomitant]
     Dosage: UNK
  7. NIFEREX                            /00198301/ [Concomitant]
     Dosage: UNK
  8. BENICAR [Concomitant]
     Dosage: UNK
  9. CARDIZEM                           /00489701/ [Concomitant]
     Dosage: UNK
  10. FIORINAL /00090401/ [Concomitant]
     Dosage: UNK

REACTIONS (5)
  - Lymphocytic lymphoma [Unknown]
  - Chronic lymphocytic leukaemia [Not Recovered/Not Resolved]
  - Arthralgia [Not Recovered/Not Resolved]
  - Gait disturbance [Not Recovered/Not Resolved]
  - Rheumatoid arthritis [Unknown]
